FAERS Safety Report 19346022 (Version 2)
Quarter: 2021Q4

REPORT INFORMATION
  Report Type: Spontaneous
  Country: US (occurrence: US)
  Receive Date: 20210531
  Receipt Date: 20211227
  Transmission Date: 20220303
  Serious: Yes (Other)
  Sender: FDA-Public Use
  Company Number: US-PURDUE PHARMA-USA-2020-0192547

PATIENT
  Age: 45 Year
  Sex: Male

DRUGS (1)
  1. OXYCODONE HYDROCHLORIDE [Suspect]
     Active Substance: OXYCODONE HYDROCHLORIDE
     Indication: Product used for unknown indication
     Dosage: UNKNOWN, TID
     Route: 048
     Dates: start: 2010, end: 2014

REACTIONS (9)
  - Drug dependence [Unknown]
  - Injury [Unknown]
  - Nerve injury [Unknown]
  - Agitation [Unknown]
  - Insomnia [Unknown]
  - Anxiety [Unknown]
  - Dopamine dysregulation syndrome [Unknown]
  - Pain [Unknown]
  - Emotional distress [Unknown]
